FAERS Safety Report 13670344 (Version 1)
Quarter: 2017Q2

REPORT INFORMATION
  Report Type: Report from Study
  Country: PK (occurrence: PK)
  Receive Date: 20170620
  Receipt Date: 20170620
  Transmission Date: 20170830
  Serious: Yes (Hospitalization, Other)
  Sender: FDA-Public Use
  Company Number: PHHY2017PK088843

PATIENT
  Age: 35 Year
  Sex: Male
  Weight: 59 kg

DRUGS (2)
  1. TASIGNA [Suspect]
     Active Substance: NILOTINIB
     Dosage: 800 MG, BID
     Route: 048
     Dates: start: 20170613
  2. TASIGNA [Suspect]
     Active Substance: NILOTINIB
     Indication: CHRONIC MYELOID LEUKAEMIA
     Dosage: 800 MG, BID
     Route: 048
     Dates: start: 20170510

REACTIONS (8)
  - Metastases to central nervous system [Unknown]
  - Motion sickness [Unknown]
  - Swelling face [Recovering/Resolving]
  - Vomiting [Unknown]
  - Epilepsy [Unknown]
  - Loss of consciousness [Unknown]
  - Headache [Unknown]
  - Neck pain [Unknown]

NARRATIVE: CASE EVENT DATE: 20170604
